FAERS Safety Report 7503073-2 (Version None)
Quarter: 2011Q2

REPORT INFORMATION
  Report Type: 
  Country: None (occurrence: None)
  Receive Date: 20110525
  Receipt Date: 20101011
  Transmission Date: 20111010
  Serious: No
  Sender: FDA-Public Use
  Company Number: US-NOVEN-ALL1-2010-05312

PATIENT
  Age: 13 Year
  Sex: Male
  Weight: 70.295 kg

DRUGS (11)
  1. ABILIFY [Concomitant]
     Dosage: 10 MG, 1X/DAY:QD(EVERY AM)
     Route: 065
  2. COGENTIN [Concomitant]
     Dosage: .5 MG, 2X/DAY:BID(0.5MG IN THE MORNING AND 0.5 MG IN THE EVENING)
     Route: 065
  3. TRAZODONE HCL [Concomitant]
     Dosage: 50 MG, 1X/DAY:QD(EVERY DAY AT NOON)
     Route: 065
  4. ABILIFY [Concomitant]
     Dosage: 15 MG, 1X/DAY:QD(EVERY PM)
     Route: 065
  5. TRAZODONE HCL [Concomitant]
     Dosage: 100 MG, 1X/DAY:QD(EVERY MORNING)
     Route: 065
  6. TOPAMAX [Concomitant]
     Dosage: 50 MG, 1X/DAY:QD(EVERY MORNING)
     Route: 065
  7. TRILEPTAL [Concomitant]
     Dosage: 600 MG, 2X/DAY:BID
     Route: 065
  8. TOPAMAX [Concomitant]
     Dosage: 75 MG, 1X/DAY:QD(EVERY EVENING)
     Route: 065
  9. DAYTRANA [Suspect]
     Dosage: 10 MG, 1X/DAY:QD
     Route: 062
     Dates: start: 20101007, end: 20101001
  10. TRAZODONE HCL [Concomitant]
     Dosage: 100 MG, 1X/DAY:QD(EVERY EVENING)
     Route: 065
  11. LORATADINE [Concomitant]
     Dosage: 10 MG, 1X/DAY:QD(EVERY MORNING)
     Route: 065

REACTIONS (4)
  - INSOMNIA [None]
  - AGGRESSION [None]
  - OFF LABEL USE [None]
  - EMOTIONAL DISTRESS [None]
